FAERS Safety Report 6571316-8 (Version None)
Quarter: 2010Q1

REPORT INFORMATION
  Report Type: 
  Country: None (occurrence: None)
  Receive Date: 20100201
  Receipt Date: 20100120
  Transmission Date: 20100710
  Serious: No
  Sender: FDA-Public Use
  Company Number: 20108038

PATIENT
  Sex: Male

DRUGS (3)
  1. LIORESAL [Suspect]
     Indication: MUSCLE SPASTICITY
     Dosage: DAILY, INTRATHECAL
     Route: 037
  2. MORPHINE [Concomitant]
  3. DILAUDID [Concomitant]

REACTIONS (3)
  - IMPLANT SITE MASS [None]
  - INCORRECT DOSE ADMINISTERED [None]
  - PAIN [None]
